FAERS Safety Report 14752617 (Version 1)
Quarter: 2018Q2

REPORT INFORMATION
  Report Type: Spontaneous
  Country: US (occurrence: US)
  Receive Date: 20180412
  Receipt Date: 20180412
  Transmission Date: 20180711
  Serious: Yes (Hospitalization, Other)
  Sender: FDA-Public Use
  Company Number: US-SAOL THERAPEUTICS-2018SAO00355

PATIENT
  Sex: Female
  Weight: 43.84 kg

DRUGS (3)
  1. BACLOFEN. [Suspect]
     Active Substance: BACLOFEN
     Route: 037
  2. KEPPRA [Concomitant]
     Active Substance: LEVETIRACETAM
     Dosage: 800 MG, 2X/DAY
     Route: 048
  3. GLOCOLAX [Concomitant]

REACTIONS (3)
  - Drug dose omission [Unknown]
  - Drug withdrawal syndrome [Not Recovered/Not Resolved]
  - Device failure [Unknown]
